FAERS Safety Report 5423777-5 (Version None)
Quarter: 2007Q3

REPORT INFORMATION
  Report Type: 
  Country: None (occurrence: None)
  Receive Date: 20070823
  Receipt Date: 20070821
  Transmission Date: 20080115
  Serious: Yes (Life-Threatening)
  Sender: FDA-Public Use
  Company Number: CN-BAYER-200714835GDS

PATIENT
  Age: 49 Year
  Sex: Male

DRUGS (1)
  1. NIMOTOP [Suspect]
     Indication: CEREBRAL HAEMORRHAGE
     Route: 042
     Dates: start: 20070815, end: 20070818

REACTIONS (3)
  - CHILLS [None]
  - PYREXIA [None]
  - RESPIRATORY FAILURE [None]
